FAERS Safety Report 11331102 (Version 1)
Quarter: 2015Q3

REPORT INFORMATION
  Report Type: Spontaneous
  Country: US (occurrence: US)
  Receive Date: 20150803
  Receipt Date: 20150803
  Transmission Date: 20151125
  Serious: No
  Sender: FDA-Public Use
  Company Number: US-ELI_LILLY_AND_COMPANY-US201507008313

PATIENT
  Sex: Male

DRUGS (5)
  1. HUMULIN 70/30 [Suspect]
     Active Substance: INSULIN HUMAN
     Indication: TYPE 1 DIABETES MELLITUS
     Dosage: 70 U, BID
     Route: 065
     Dates: start: 1999
  2. CHROMIUM PICOLINATE [Concomitant]
     Active Substance: CHROMIUM PICOLINATE
     Dosage: 800 MG, UNK
  3. INSULIN HUMAN [Suspect]
     Active Substance: INSULIN HUMAN
     Dosage: 15-20 U, EACH EVENING
     Route: 065
  4. HUMULIN 70/30 [Suspect]
     Active Substance: INSULIN HUMAN
     Indication: TYPE 1 DIABETES MELLITUS
     Dosage: UNK UNK, BID
     Route: 065
     Dates: start: 1999
  5. INSULIN HUMAN [Suspect]
     Active Substance: INSULIN HUMAN
     Indication: TYPE 1 DIABETES MELLITUS
     Dosage: 15 U, QD MIDDAY
     Route: 065

REACTIONS (14)
  - Ear infection [Unknown]
  - Injection site bruising [Unknown]
  - General physical condition abnormal [Unknown]
  - Vision blurred [Recovered/Resolved]
  - Feeling abnormal [Not Recovered/Not Resolved]
  - Expired product administered [Unknown]
  - Abdominal distension [Recovering/Resolving]
  - Injection site pain [Unknown]
  - Nasopharyngitis [Unknown]
  - Cataract [Unknown]
  - Medication error [Unknown]
  - Weight decreased [Not Recovered/Not Resolved]
  - Drug ineffective [Not Recovered/Not Resolved]
  - Blood glucose increased [Not Recovered/Not Resolved]

NARRATIVE: CASE EVENT DATE: 2013
